FAERS Safety Report 6964750 (Version 2)
Quarter: 2020Q1

REPORT INFORMATION
  Report Type: Spontaneous
  Country: NL (occurrence: NL)
  Receive Date: 20090409
  Receipt Date: 20200211
  Transmission Date: 20200409
  Serious: Yes (Other)
  Sender: FDA-Public Use
  Company Number: PHHY2009NL12115

PATIENT
  Age: 38 Year
  Sex: Male

DRUGS (2)
  1. CYTARABINE. [Suspect]
     Active Substance: CYTARABINE
     Indication: CHRONIC MYELOID LEUKAEMIA
     Dosage: UNK MG/M2
     Route: 065
  2. IMATINIB. [Suspect]
     Active Substance: IMATINIB MESYLATE
     Indication: CHRONIC MYELOID LEUKAEMIA
     Dosage: UNK MG
     Route: 065

REACTIONS (6)
  - Fatigue [Recovered/Resolved]
  - Productive cough [Recovered/Resolved]
  - Pyrexia [Recovered/Resolved]
  - Night sweats [Recovered/Resolved]
  - Tuberculosis [Recovered/Resolved]
  - Pulmonary cavitation [Recovered/Resolved]
